FAERS Safety Report 5054012-8 (Version None)
Quarter: 2006Q3

REPORT INFORMATION
  Report Type: 
  Country: None (occurrence: None)
  Receive Date: 20060713
  Receipt Date: 20060710
  Transmission Date: 20061208
  Serious: Yes (Death, Hospitalization)
  Sender: FDA-Public Use
  Company Number: 200611272GDS

PATIENT
  Age: 44 Year
  Sex: Male
  Weight: 101 kg

DRUGS (5)
  1. DACARBAZINE [Suspect]
     Indication: MALIGNANT MELANOMA
     Dosage: 1000 MG/M2, INTRAVENOUS
     Route: 042
     Dates: start: 20060320
  2. GENASENSE [Suspect]
     Indication: MALIGNANT MELANOMA
     Dosage: 7 MG/KG, TOTAL DAILY, INTRAVENOUS
     Route: 042
     Dates: start: 20060315, end: 20060320
  3. NOVOCAIN [Concomitant]
  4. ALCLOFENAC [Concomitant]
  5. ZOFRAN [Concomitant]

REACTIONS (4)
  - PANCREATIC NECROSIS [None]
  - PANCREATITIS ACUTE [None]
  - PERITONITIS [None]
  - SHOCK [None]
